FAERS Safety Report 9547473 (Version 1)
Quarter: 2013Q3

REPORT INFORMATION
  Report Type: Spontaneous
  Country: US (occurrence: None)
  Receive Date: 20130920
  Receipt Date: 20130920
  Transmission Date: 20140515
  Serious: Yes (Hospitalization)
  Sender: FDA-Public Use
  Company Number: SYM-2013-10707

PATIENT
  Age: 67 Year
  Sex: Female

DRUGS (1)
  1. XENAZINE (TETRABENAZINE) (37.5 MILLIGRAM TABLET) (TETRABENAZINE) [Suspect]
     Indication: VASCULAR DEMENTIA
     Route: 048
     Dates: start: 20120306, end: 20130802

REACTIONS (1)
  - Surgery [None]
